FAERS Safety Report 24968789 (Version 1)
Quarter: 2025Q1

REPORT INFORMATION
  Report Type: Report from Study
  Country: US (occurrence: US)
  Receive Date: 20250214
  Receipt Date: 20250214
  Transmission Date: 20250409
  Serious: No
  Sender: AMNEAL
  Company Number: US-AMNEAL PHARMACEUTICALS-2024-AMRX-02418

PATIENT
  Age: 82 Year
  Sex: Female

DRUGS (1)
  1. CARBIDOPA\LEVODOPA [Suspect]
     Active Substance: CARBIDOPA\LEVODOPA
     Indication: Product used for unknown indication
     Dosage: (23.75-95 MG) 3 CAPSULES, 3 /DAY
     Route: 048

REACTIONS (4)
  - Tremor [Unknown]
  - Fatigue [Unknown]
  - Decreased interest [Unknown]
  - Stress [Unknown]

NARRATIVE: CASE EVENT DATE: 20240627
